FAERS Safety Report 24264931 (Version 1)
Quarter: 2024Q3

REPORT INFORMATION
  Report Type: Spontaneous
  Country: US (occurrence: None)
  Receive Date: 20240829
  Receipt Date: 20240829
  Transmission Date: 20241017
  Serious: No
  Sender: Public
  Company Number: None

PATIENT
  Age: 61 Year
  Sex: Female

DRUGS (1)
  1. TALTZ [Suspect]
     Active Substance: IXEKIZUMAB
     Indication: Psoriasis
     Dosage: OTHER FREQUENCY : AT WK 12. THEN EVERY 4 WEEKS AS DIRECTED;?
     Route: 058
     Dates: start: 202402

REACTIONS (2)
  - Diverticulitis [None]
  - Therapy interrupted [None]
